FAERS Safety Report 20674124 (Version 2)
Quarter: 2024Q1

REPORT INFORMATION
  Report Type: Report from Study
  Country: US (occurrence: US)
  Receive Date: 20220405
  Receipt Date: 20240315
  Transmission Date: 20240410
  Serious: Yes (Other)
  Sender: FDA-Public Use
  Company Number: US-GILEAD-2022-0576105

PATIENT
  Age: 55 Year
  Sex: Female

DRUGS (4)
  1. AXICABTAGENE CILOLEUCEL [Suspect]
     Active Substance: AXICABTAGENE CILOLEUCEL
     Indication: Non-Hodgkin^s lymphoma
     Route: 042
  2. LENALIDOMIDE;RITUXIMAB [Concomitant]
     Indication: Chemotherapy
  3. CYCLOPHOSPHAMIDE [Concomitant]
     Active Substance: CYCLOPHOSPHAMIDE
     Indication: Bone marrow conditioning regimen
  4. FLUDARABINE PHOSPHATE [Concomitant]
     Active Substance: FLUDARABINE PHOSPHATE
     Indication: Bone marrow conditioning regimen

REACTIONS (1)
  - Squamous cell carcinoma of skin [Unknown]
